FAERS Safety Report 6671700-8 (Version None)
Quarter: 2010Q2

REPORT INFORMATION
  Report Type: 
  Country: None (occurrence: None)
  Receive Date: 20100407
  Receipt Date: 20100331
  Transmission Date: 20101027
  Serious: Yes (Death, Other)
  Sender: FDA-Public Use
  Company Number: PHHY2010JP21242

PATIENT
  Sex: Male
  Weight: 66 kg

DRUGS (4)
  1. STI571/CGP57148B T35717+CAPS [Suspect]
     Indication: GASTROINTESTINAL STROMAL TUMOUR
     Dosage: 300 MG DAILY
     Route: 048
     Dates: start: 20030912, end: 20031116
  2. STI571/CGP57148B T35717+CAPS [Suspect]
     Dosage: 400 MG DAILY
     Route: 048
     Dates: start: 20031117, end: 20040219
  3. STI571/CGP57148B T35717+CAPS [Suspect]
     Dosage: 400 MG DAILY
     Route: 048
     Dates: start: 20040319, end: 20040618
  4. STI571/CGP57148B T35717+CAPS [Suspect]
     Dosage: 400 MG DAILY
     Route: 048
     Dates: start: 20061013, end: 20070207

REACTIONS (2)
  - CEREBRAL INFARCTION [None]
  - DEATH [None]
